FAERS Safety Report 8551653-8 (Version None)
Quarter: 2012Q3

REPORT INFORMATION
  Report Type: 
  Country: None (occurrence: None)
  Receive Date: 20120730
  Receipt Date: 20120725
  Transmission Date: 20120928
  Serious: Yes (Other)
  Sender: FDA-Public Use
  Company Number: US-PFIZER INC-2012181009

PATIENT
  Sex: Female
  Weight: 79.365 kg

DRUGS (17)
  1. NEURONTIN [Suspect]
     Indication: CAUDA EQUINA SYNDROME
     Dosage: 100 MG, 3X/DAY
     Route: 048
     Dates: start: 20070101, end: 20070101
  2. ZONISAMIDE [Concomitant]
     Indication: BURNING SENSATION
  3. XANAX [Concomitant]
     Indication: PANIC ATTACK
  4. LYRICA [Suspect]
     Dosage: 100 MG, 3X/DAY
     Route: 048
  5. ATIVAN [Concomitant]
     Indication: ANXIETY
     Dosage: UNK
  6. LYRICA [Suspect]
     Indication: CAUDA EQUINA SYNDROME
     Dosage: UNK
     Route: 048
     Dates: start: 20070101, end: 20070101
  7. AMITRIPTLINE HYDROCHLORIDE TAB [Suspect]
     Dosage: UNK
  8. PREDNISONE [Suspect]
     Indication: CENTRAL NERVOUS SYSTEM INFLAMMATION
  9. KLONOPIN [Concomitant]
     Indication: ANXIETY
     Dosage: UNK
  10. XANAX [Concomitant]
     Indication: ANXIETY
     Dosage: UNK
  11. LYRICA [Suspect]
     Dosage: 100 MG, 1X/DAY
     Route: 048
     Dates: start: 20070101
  12. ZONISAMIDE [Concomitant]
     Indication: VULVOVAGINAL BURNING SENSATION
     Dosage: 100 MG, 1X/DAY
  13. ZONISAMIDE [Concomitant]
     Indication: FEELING HOT
  14. PREDNISONE TAB [Suspect]
     Indication: RESPIRATORY DISORDER
     Dosage: UNK
     Route: 042
  15. KLONOPIN [Concomitant]
     Indication: PANIC ATTACK
  16. ATIVAN [Concomitant]
     Indication: PANIC ATTACK
  17. LEVOTHYROXINE [Concomitant]
     Indication: THYROID DISORDER
     Dosage: UNK

REACTIONS (1)
  - WEIGHT INCREASED [None]
